FAERS Safety Report 18834113 (Version 2)
Quarter: 2021Q1

REPORT INFORMATION
  Report Type: Report from Study
  Country: AR (occurrence: AR)
  Receive Date: 20210203
  Receipt Date: 20210222
  Transmission Date: 20210419
  Serious: Yes (Hospitalization, Other)
  Sender: FDA-Public Use
  Company Number: NVSC2020AR345130

PATIENT
  Sex: Female

DRUGS (3)
  1. TAFINLAR [Suspect]
     Active Substance: DABRAFENIB MESYLATE
     Dosage: 150 MG, Q12H
     Route: 065
     Dates: start: 20200501, end: 202010
  2. TAFINLAR [Suspect]
     Active Substance: DABRAFENIB MESYLATE
     Indication: METASTATIC MALIGNANT MELANOMA
     Dosage: 75 MG, Q12H
     Route: 065
     Dates: start: 202004
  3. MEKINIST [Suspect]
     Active Substance: TRAMETINIB DIMETHYL SULFOXIDE
     Indication: METASTATIC MALIGNANT MELANOMA
     Dosage: 2 MG, QD
     Route: 065
     Dates: start: 20200501, end: 202010

REACTIONS (6)
  - Anaemia [Recovered/Resolved]
  - Dehydration [Recovered/Resolved]
  - Neoplasm [Unknown]
  - Lymphadenopathy [Unknown]
  - Decreased appetite [Recovered/Resolved]
  - Scar [Recovering/Resolving]
